FAERS Safety Report 24582674 (Version 1)
Quarter: 2024Q4

REPORT INFORMATION
  Report Type: Spontaneous
  Country: IT (occurrence: IT)
  Receive Date: 20241106
  Receipt Date: 20241106
  Transmission Date: 20250114
  Serious: Yes (Other)
  Sender: ROCHE
  Company Number: IT-ROCHE-10000113381

PATIENT
  Age: 50 Year
  Sex: Male

DRUGS (3)
  1. PHESGO [Suspect]
     Active Substance: HYALURONIDASE-ZZXF\PERTUZUMAB\TRASTUZUMAB
     Indication: Breast cancer metastatic
     Dosage: DATE OF LAST TREATMENT BEFORE THE EVENT WAS ON 18-09-2024
     Route: 065
     Dates: start: 20240717
  2. PACLITAXEL [Suspect]
     Active Substance: PACLITAXEL
     Indication: Breast cancer metastatic
     Route: 065
  3. TAXOL [Concomitant]
     Active Substance: PACLITAXEL

REACTIONS (2)
  - Abdominal pain [Unknown]
  - Synovial cyst [Unknown]
